FAERS Safety Report 4634785-6 (Version None)
Quarter: 2005Q2

REPORT INFORMATION
  Report Type: 
  Country: None (occurrence: None)
  Receive Date: 20050412
  Receipt Date: 20050412
  Transmission Date: 20051028
  Serious: Yes (Other)
  Sender: FDA-Public Use
  Company Number: None

PATIENT
  Age: 56 Year
  Sex: Female
  Weight: 58.9676 kg

DRUGS (1)
  1. CHLORHEXIDINE GLUCONATE [Suspect]
     Indication: GINGIVAL DISORDER
     Dosage: 1 CAPFUL  USED ONCE DENTAL
     Route: 004
     Dates: start: 20050322, end: 20050322

REACTIONS (5)
  - BURNING SENSATION [None]
  - GINGIVAL SWELLING [None]
  - PARAESTHESIA [None]
  - STOMATITIS [None]
  - SWOLLEN TONGUE [None]
